FAERS Safety Report 4617228-8 (Version None)
Quarter: 2005Q1

REPORT INFORMATION
  Report Type: 
  Country: None (occurrence: None)
  Receive Date: 20050323
  Receipt Date: 20050307
  Transmission Date: 20050727
  Serious: Yes (Hospitalization)
  Sender: FDA-Public Use
  Company Number: PHNU2005DE01245

PATIENT
  Age: 34 Year
  Sex: Female
  Weight: 55 kg

DRUGS (1)
  1. LAMISIL [Suspect]
     Indication: ONYCHOMYCOSIS
     Dosage: UNK, UNK
     Route: 048
     Dates: start: 20050209, end: 20050221

REACTIONS (15)
  - ARTHRALGIA [None]
  - BLOOD ALKALINE PHOSPHATASE INCREASED [None]
  - C-REACTIVE PROTEIN INCREASED [None]
  - DIARRHOEA [None]
  - ERYTHEMA [None]
  - EXANTHEM [None]
  - GAMMA-GLUTAMYLTRANSFERASE INCREASED [None]
  - JOINT SWELLING [None]
  - JUVENILE ARTHRITIS [None]
  - LEUKOCYTOSIS [None]
  - MYALGIA [None]
  - MYOSITIS [None]
  - PYREXIA [None]
  - SERUM FERRITIN INCREASED [None]
  - THROMBOCYTHAEMIA [None]
